FAERS Safety Report 21982638 (Version 1)
Quarter: 2023Q1

REPORT INFORMATION
  Report Type: Spontaneous
  Country: KR (occurrence: KR)
  Receive Date: 20230213
  Receipt Date: 20230213
  Transmission Date: 20230417
  Serious: Yes (Other)
  Sender: FDA-Public Use
  Company Number: KR-UCBSA-2023006557

PATIENT
  Age: 45 Year
  Sex: Male

DRUGS (3)
  1. KEPPRA [Suspect]
     Active Substance: LEVETIRACETAM
     Indication: Subarachnoid haemorrhage
     Dosage: 500 MILLIGRAM, ONCE DAILY (QD)
     Route: 048
     Dates: start: 20190208, end: 20190222
  2. KEPPRA [Suspect]
     Active Substance: LEVETIRACETAM
     Indication: Off label use
  3. PROPACETAMOL HYDROCHLORIDE [Suspect]
     Active Substance: PROPACETAMOL HYDROCHLORIDE
     Indication: Subarachnoid haemorrhage
     Dosage: 2 GRAM, ONCE DAILY (QD)
     Route: 042
     Dates: start: 20190209, end: 20190222

REACTIONS (2)
  - Renal impairment [Recovered/Resolved]
  - Off label use [Unknown]

NARRATIVE: CASE EVENT DATE: 20190208
